FAERS Safety Report 10275734 (Version 3)
Quarter: 2014Q3

REPORT INFORMATION
  Report Type: Spontaneous
  Country: JP (occurrence: JP)
  Receive Date: 20140703
  Receipt Date: 20140807
  Transmission Date: 20150326
  Serious: Yes (Death, Other)
  Sender: FDA-Public Use
  Company Number: JP-JNJFOC-20140701382

PATIENT
  Age: 64 Year
  Sex: Male
  Weight: 81 kg

DRUGS (5)
  1. AKINETON [Suspect]
     Active Substance: BIPERIDEN HYDROCHLORIDE
     Indication: PROPHYLAXIS
     Route: 048
     Dates: end: 20140629
  2. NELBON [Concomitant]
     Active Substance: NITRAZEPAM
     Indication: INSOMNIA
     Route: 048
     Dates: end: 20140629
  3. XEPLION [Suspect]
     Active Substance: PALIPERIDONE PALMITATE
     Indication: SCHIZOPHRENIA
     Route: 030
     Dates: start: 20140317, end: 20140623
  4. HIRNAMIN (LEVOPROMAZINE MALEATE) [Suspect]
     Active Substance: LEVOMEPROMAZINE MALEATE
     Indication: INSOMNIA
     Route: 048
     Dates: end: 20140629
  5. EURODIN [Concomitant]
     Active Substance: ESTAZOLAM
     Indication: INSOMNIA
     Route: 048
     Dates: end: 20140629

REACTIONS (7)
  - Malaise [Not Recovered/Not Resolved]
  - Abasia [Not Recovered/Not Resolved]
  - Myocardial infarction [Fatal]
  - Dizziness [Not Recovered/Not Resolved]
  - Psychiatric symptom [Not Recovered/Not Resolved]
  - Irritability [Not Recovered/Not Resolved]
  - Polydipsia [Not Recovered/Not Resolved]

NARRATIVE: CASE EVENT DATE: 20140626
